FAERS Safety Report 14280732 (Version 1)
Quarter: 2017Q4

REPORT INFORMATION
  Report Type: Spontaneous
  Country: GB (occurrence: GB)
  Receive Date: 20171213
  Receipt Date: 20171213
  Transmission Date: 20180321
  Serious: Yes (Other)
  Sender: FDA-Public Use
  Company Number: PHHY2017GB178738

PATIENT
  Age: 11 Year
  Sex: Female

DRUGS (8)
  1. CYCLOPHOSPHAMIDE. [Suspect]
     Active Substance: CYCLOPHOSPHAMIDE
     Indication: HYPOPYON
     Dosage: 500 MG, FORTNIGHTLYINCREASING TO 1G 3-WEEKLY
     Route: 042
  2. PREDNISOLONE. [Suspect]
     Active Substance: PREDNISOLONE
     Indication: PRODUCT USED FOR UNKNOWN INDICATION
     Route: 048
  3. MYCOPHENOLATE MOFETIL. [Suspect]
     Active Substance: MYCOPHENOLATE MOFETIL
     Indication: CHORIORETINITIS
     Dosage: 600 MG, BID
     Route: 048
  4. METHYLPREDNISOLONE. [Suspect]
     Active Substance: METHYLPREDNISOLONE
     Indication: ARTHRITIS
     Dosage: UNK
     Route: 042
  5. INFLIXIMAB [Suspect]
     Active Substance: INFLIXIMAB
     Indication: CHORIORETINITIS
     Dosage: 6 MG/KG 4 WEEKLY
     Route: 042
  6. CYCLOPHOSPHAMIDE. [Suspect]
     Active Substance: CYCLOPHOSPHAMIDE
     Indication: CHORIORETINITIS
  7. CYCLOPHOSPHAMIDE. [Suspect]
     Active Substance: CYCLOPHOSPHAMIDE
     Indication: BLINDNESS
  8. METHOTREXATE. [Suspect]
     Active Substance: METHOTREXATE
     Indication: ARTHRITIS
     Dosage: 15 MG
     Route: 058

REACTIONS (8)
  - Product use in unapproved indication [Unknown]
  - Necrotising retinitis [Unknown]
  - Uveitis [Unknown]
  - Hypopyon [Unknown]
  - Choroiditis [Unknown]
  - Cystoid macular oedema [Unknown]
  - Optic neuritis [Unknown]
  - Visual impairment [Recovering/Resolving]
